FAERS Safety Report 9257306 (Version 1)
Quarter: 2013Q1

REPORT INFORMATION
  Report Type: Spontaneous
  Country: US (occurrence: None)
  Receive Date: 20121212
  Receipt Date: 20121212
  Transmission Date: 20140127
  Serious: No
  Sender: FDA-Public Use
  Company Number: 1208USA008291

PATIENT
  Age: 52 Year
  Sex: Male

DRUGS (3)
  1. PEGINTRON [Suspect]
     Indication: HEPATITIS C
     Dates: start: 20120727
  2. RIBAVIRIN [Suspect]
     Indication: HEPATITIS C
     Dates: start: 20120726
  3. VICTRELIS [Suspect]
     Indication: HEPATITIS C
     Dates: start: 20120823

REACTIONS (5)
  - Back pain [None]
  - Libido decreased [None]
  - Red blood cell count decreased [None]
  - Arthralgia [None]
  - Red blood cell count decreased [None]
